FAERS Safety Report 10793249 (Version 2)
Quarter: 2015Q1

REPORT INFORMATION
  Report Type: Spontaneous
  Country: US (occurrence: US)
  Receive Date: 20150213
  Receipt Date: 20150304
  Transmission Date: 20150721
  Serious: No
  Sender: FDA-Public Use
  Company Number: US-PFIZER INC-2015059075

PATIENT
  Age: 55 Year
  Sex: Female
  Weight: 63.39 kg

DRUGS (1)
  1. LYRICA [Suspect]
     Active Substance: PREGABALIN
     Indication: FIBROMYALGIA
     Dosage: 225 MG, 2X/DAY

REACTIONS (2)
  - Pain [Not Recovered/Not Resolved]
  - Nasopharyngitis [Unknown]
